FAERS Safety Report 7015707-X (Version None)
Quarter: 2010Q3

REPORT INFORMATION
  Report Type: 
  Country: None (occurrence: None)
  Receive Date: 20100927
  Receipt Date: 20100405
  Transmission Date: 20110219
  Serious: No
  Sender: FDA-Public Use
  Company Number: US-ASTRAZENECA-2010SE14782

PATIENT
  Age: 25097 Day
  Sex: Female
  Weight: 61.2 kg

DRUGS (5)
  1. ARIMIDEX [Suspect]
     Indication: BREAST CANCER
     Route: 048
     Dates: start: 20100315
  2. NEXIUM [Concomitant]
  3. LEVASA [Concomitant]
  4. PROZAC [Concomitant]
  5. ZETIA [Concomitant]

REACTIONS (4)
  - ARTHRALGIA [None]
  - CONSTIPATION [None]
  - ONYCHOCLASIS [None]
  - PRURITUS [None]
